FAERS Safety Report 8958371 (Version 2)
Quarter: 2013Q1

REPORT INFORMATION
  Report Type: Spontaneous
  Country: US (occurrence: US)
  Receive Date: 20121210
  Receipt Date: 20130118
  Transmission Date: 20140127
  Serious: Yes (Other)
  Sender: FDA-Public Use
  Company Number: US-GLAXOSMITHKLINE-A1004582A

PATIENT
  Age: 52 Year
  Sex: Female

DRUGS (8)
  1. VENTOLIN HFA [Suspect]
     Indication: ASTHMA
     Dosage: 4PUFF AS REQUIRED
     Route: 055
     Dates: start: 199705
  2. ALBUTEROL [Concomitant]
     Route: 055
  3. OXYGEN [Concomitant]
  4. MORPHINE [Concomitant]
  5. ESTROVEN [Concomitant]
  6. LIPITOR [Concomitant]
  7. THYROID MEDICATION [Concomitant]
  8. PREDNISONE TAPER [Concomitant]

REACTIONS (8)
  - Pharyngitis streptococcal [Unknown]
  - Pneumonia [Unknown]
  - Dizziness [Unknown]
  - Dyspnoea [Recovering/Resolving]
  - Local swelling [Unknown]
  - Joint swelling [Unknown]
  - Oxygen saturation decreased [Unknown]
  - Malaise [Unknown]
